FAERS Safety Report 12927105 (Version 1)
Quarter: 2016Q4

REPORT INFORMATION
  Report Type: Spontaneous
  Country: IT (occurrence: IT)
  Receive Date: 20161109
  Receipt Date: 20161109
  Transmission Date: 20170207
  Serious: Yes (Hospitalization)
  Sender: FDA-Public Use
  Company Number: IT-B.I. PHARMACEUTICALS,INC./RIDGEFIELD-2016-BI-072797

PATIENT
  Age: 90 Year
  Sex: Male

DRUGS (2)
  1. SOTALOL. [Concomitant]
     Active Substance: SOTALOL
     Indication: PRODUCT USED FOR UNKNOWN INDICATION
  2. PRADAXA [Suspect]
     Active Substance: DABIGATRAN ETEXILATE MESYLATE
     Indication: ATRIAL FIBRILLATION
     Route: 048

REACTIONS (5)
  - Dysarthria [Unknown]
  - Cerebrovascular accident [Unknown]
  - Aphasia [Unknown]
  - Headache [Unknown]
  - Balance disorder [Unknown]

NARRATIVE: CASE EVENT DATE: 20160210
